FAERS Safety Report 4407664-7 (Version None)
Quarter: 2004Q3

REPORT INFORMATION
  Report Type: 
  Country: None (occurrence: None)
  Receive Date: 20040721
  Receipt Date: 20040712
  Transmission Date: 20050211
  Serious: Yes (Other)
  Sender: FDA-Public Use
  Company Number: 2003-07-3382

PATIENT
  Age: 57 Year
  Sex: Female

DRUGS (5)
  1. RIBAVIRIN [Suspect]
     Indication: SEVERE ACUTE RESPIRATORY SYNDROME
     Dosage: SEE IMAGE
     Route: 048
     Dates: start: 20030401, end: 20030401
  2. RIBAVIRIN [Suspect]
     Indication: SEVERE ACUTE RESPIRATORY SYNDROME
     Dosage: SEE IMAGE
     Route: 048
     Dates: start: 20030404, end: 20030401
  3. RIBAVIRIN [Suspect]
     Indication: SEVERE ACUTE RESPIRATORY SYNDROME
     Dosage: SEE IMAGE
     Route: 048
     Dates: end: 20030413
  4. LEVOFLOXACIN [Suspect]
     Dosage: 500 MG QD ORAL
     Route: 048
     Dates: start: 20030404, end: 20030409
  5. METHYLPREDNISOLONE [Concomitant]

REACTIONS (2)
  - HYPOCALCAEMIA [None]
  - LYMPHOPENIA [None]
